FAERS Safety Report 4294735-1 (Version None)
Quarter: 2004Q1

REPORT INFORMATION
  Report Type: 
  Country: None (occurrence: None)
  Receive Date: 20040213
  Receipt Date: 20031210
  Transmission Date: 20041129
  Serious: Yes (Other)
  Sender: FDA-Public Use
  Company Number: BR-BRISTOL-MYERS SQUIBB COMPANY-12456190

PATIENT
  Age: 68 Year
  Sex: Female
  Weight: 41 kg

DRUGS (1)
  1. TAXOL [Suspect]
     Indication: BREAST CANCER
     Route: 042
     Dates: start: 20030219, end: 20031105

REACTIONS (2)
  - CONSTIPATION [None]
  - NEUROPATHY PERIPHERAL [None]
